FAERS Safety Report 21919202 (Version 1)
Quarter: 2023Q1

REPORT INFORMATION
  Report Type: Report from Study
  Country: JP (occurrence: JP)
  Receive Date: 20230127
  Receipt Date: 20230127
  Transmission Date: 20230418
  Serious: Yes (Death, Hospitalization, Other)
  Sender: FDA-Public Use
  Company Number: JP-Accord-297363

PATIENT
  Age: 85 Year
  Sex: Male

DRUGS (1)
  1. GEMCITABINE [Suspect]
     Active Substance: GEMCITABINE
     Indication: Pancreatic carcinoma
     Dosage: 1,000 MG/M2: DAYS 1, 8 AND 15,??CUMULATIVE DOSE: 55,270 MG

REACTIONS (1)
  - Thrombotic thrombocytopenic purpura [Fatal]
